FAERS Safety Report 7338994-7 (Version None)
Quarter: 2011Q1

REPORT INFORMATION
  Report Type: 
  Country: None (occurrence: None)
  Receive Date: 20110308
  Receipt Date: 20110304
  Transmission Date: 20110831
  Serious: Yes (Death)
  Sender: FDA-Public Use
  Company Number: US-B.I. PHARMACEUTICALS,INC./RIDGEFIELD-2011-BP-06892BP

PATIENT
  Age: 75 Year
  Sex: Male

DRUGS (11)
  1. ALDACTONE [Concomitant]
  2. LASIX [Concomitant]
  3. TIKASYN [Concomitant]
     Dosage: 50 MG
  4. PRIMAXIN [Concomitant]
     Dosage: 300 MG
  5. LEVOTHYROXINE SODIUM [Concomitant]
  6. MAGNESIUM OXIDE [Concomitant]
     Dosage: 800 MG
  7. PRADAXA [Suspect]
  8. IRON [Concomitant]
  9. METOPROLOL [Concomitant]
     Dosage: 50 MG
  10. ATACAND [Concomitant]
     Dosage: 4 MG
  11. MEXILETINE HYDROCHLORIDE [Concomitant]
     Dosage: 300 MG

REACTIONS (15)
  - EPISTAXIS [None]
  - HAEMORRHAGE [None]
  - HAEMOPTYSIS [None]
  - BLOODY AIRWAY DISCHARGE [None]
  - DYSPNOEA [None]
  - DEATH [None]
  - BLOOD CREATINE INCREASED [None]
  - ACTIVATED PARTIAL THROMBOPLASTIN TIME PROLONGED [None]
  - NASAL CONGESTION [None]
  - BLOOD URINE PRESENT [None]
  - PROTHROMBIN LEVEL INCREASED [None]
  - INTERNATIONAL NORMALISED RATIO INCREASED [None]
  - PULMONARY OEDEMA [None]
  - BLOOD POTASSIUM INCREASED [None]
  - COUGH [None]
